FAERS Safety Report 15966754 (Version 8)
Quarter: 2019Q3

REPORT INFORMATION
  Report Type: Report from Study
  Country: IE (occurrence: IE)
  Receive Date: 20190215
  Receipt Date: 20190925
  Transmission Date: 20191004
  Serious: Yes (Hospitalization, Other)
  Sender: FDA-Public Use
  Company Number: IE-BRISTOL-MYERS SQUIBB COMPANY-BMS-2019-011763

PATIENT
  Age: 63 Year
  Sex: Female

DRUGS (10)
  1. IPILIMUMAB [Suspect]
     Active Substance: IPILIMUMAB
     Indication: MALIGNANT MELANOMA
     Dosage: 250 MILLIGRAM, 3 ROUNDS OF TREATMENT GIVEN
     Route: 042
     Dates: start: 20190121, end: 20190313
  2. ZOMETA [Suspect]
     Active Substance: ZOLEDRONIC ACID
     Indication: METASTASES TO BONE
     Dosage: 4 MILLIGRAM
     Route: 042
     Dates: start: 20190130, end: 20190130
  3. NIVOLUMAB [Suspect]
     Active Substance: NIVOLUMAB
     Indication: MALIGNANT MELANOMA
     Dosage: 100 MILLIGRAM, 3 ROUNDS OF TREATMENT GIVEN
     Route: 042
     Dates: start: 20190121, end: 20190313
  4. ROSUVASTATIN                       /01588602/ [Concomitant]
     Active Substance: ROSUVASTATIN CALCIUM
     Indication: HYPERCHOLESTEROLAEMIA
     Dosage: 10 MILLIGRAM
     Route: 065
  5. OMEPRAZOLE. [Concomitant]
     Active Substance: OMEPRAZOLE
     Indication: GASTROOESOPHAGEAL REFLUX DISEASE
     Dosage: 20 MILLIGRAM
     Route: 065
     Dates: start: 2010
  6. PIRITON [Concomitant]
     Active Substance: CHLORPHENIRAMINE MALEATE
     Indication: PROPHYLAXIS
     Dosage: 4 MILLIGRAM
     Route: 065
     Dates: start: 20190313
  7. LEMTRADA [Suspect]
     Active Substance: ALEMTUZUMAB
     Indication: MALIGNANT MELANOMA
     Dosage: UNK
     Route: 065
     Dates: start: 20190124
  8. ASPIRIN                            /00002701/ [Concomitant]
     Active Substance: ASPIRIN
     Indication: ANGINA PECTORIS
     Dosage: 75 MILLIGRAM, DAILY
     Route: 065
  9. DESUNIN [Concomitant]
     Active Substance: CHOLECALCIFEROL
     Indication: PRODUCT USED FOR UNKNOWN INDICATION
     Dosage: 800 INTERNATIONAL UNIT, QD (ONCE DAILY)
     Route: 065
  10. CETRIZINE [Concomitant]
     Active Substance: CETIRIZINE HYDROCHLORIDE
     Indication: PROPHYLAXIS
     Dosage: 10 MILLIGRAM
     Route: 065
     Dates: start: 20190313

REACTIONS (16)
  - Myalgia [Unknown]
  - Diarrhoea [Not Recovered/Not Resolved]
  - Dry skin [Recovering/Resolving]
  - Abdominal discomfort [Not Recovered/Not Resolved]
  - Back pain [Recovered/Resolved]
  - Headache [Recovered/Resolved]
  - Musculoskeletal stiffness [Not Recovered/Not Resolved]
  - Arthralgia [Recovered/Resolved]
  - Pruritus [Not Recovered/Not Resolved]
  - Rash generalised [Recovering/Resolving]
  - Bone pain [Recovered/Resolved]
  - Pyrexia [Recovered/Resolved]
  - Rash maculo-papular [Recovering/Resolving]
  - Fatigue [Not Recovered/Not Resolved]
  - Influenza like illness [Unknown]
  - Abdominal pain upper [Not Recovered/Not Resolved]

NARRATIVE: CASE EVENT DATE: 20190131
